FAERS Safety Report 25385135 (Version 1)
Quarter: 2025Q2

REPORT INFORMATION
  Report Type: Spontaneous
  Country: US (occurrence: US)
  Receive Date: 20250602
  Receipt Date: 20250602
  Transmission Date: 20250716
  Serious: No
  Sender: Kenvue
  Company Number: US-KENVUE-20250500688

PATIENT
  Age: 82 Year
  Sex: Male

DRUGS (3)
  1. MAXIMUM STRENGTH PEPCID AC ICY COOL MINT [Suspect]
     Active Substance: FAMOTIDINE
     Indication: Cardiac ablation
     Dosage: 1 DOSAGE FORM, ONCE A DAY
     Route: 048
     Dates: start: 20250419
  2. MAXIMUM STRENGTH PEPCID AC ICY COOL MINT [Suspect]
     Active Substance: FAMOTIDINE
     Indication: COVID-19
  3. ELIQUIS [Concomitant]
     Active Substance: APIXABAN
     Indication: Anticoagulant therapy
     Route: 065

REACTIONS (1)
  - Off label use [Unknown]

NARRATIVE: CASE EVENT DATE: 20250419
